FAERS Safety Report 7927755-3 (Version None)
Quarter: 2011Q4

REPORT INFORMATION
  Report Type: 
  Country: None (occurrence: None)
  Receive Date: 20111118
  Receipt Date: 20110816
  Transmission Date: 20120403
  Serious: No
  Sender: FDA-Public Use
  Company Number: US-BRISTOL-MYERS SQUIBB COMPANY-15945496

PATIENT
  Sex: Female

DRUGS (1)
  1. METFORMIN HCL [Suspect]
     Dosage: METFORMIN HCL XR 500MG

REACTIONS (5)
  - DIARRHOEA [None]
  - NAUSEA [None]
  - FATIGUE [None]
  - GASTROINTESTINAL DISORDER [None]
  - FLATULENCE [None]
